FAERS Safety Report 7689254-6 (Version None)
Quarter: 2011Q3

REPORT INFORMATION
  Report Type: 
  Country: None (occurrence: None)
  Receive Date: 20110817
  Receipt Date: 20110810
  Transmission Date: 20111222
  Serious: Yes (Hospitalization)
  Sender: FDA-Public Use
  Company Number: GB-AMGEN-GBRCT2011040726

PATIENT
  Age: 64 Year
  Sex: Male

DRUGS (4)
  1. CAPECITABINE [Concomitant]
     Indication: OESOPHAGEAL ADENOCARCINOMA
     Dosage: UNK
     Dates: start: 20110317
  2. PANITUMUMAB [Suspect]
     Indication: OESOPHAGEAL ADENOCARCINOMA
     Dosage: UNK
     Dates: start: 20110317
  3. EPIRUBICIN [Concomitant]
     Indication: OESOPHAGEAL ADENOCARCINOMA
     Dosage: UNK
     Dates: start: 20110317
  4. OXALIPLATIN [Concomitant]
     Indication: OESOPHAGEAL ADENOCARCINOMA
     Dosage: UNK
     Dates: start: 20110317

REACTIONS (3)
  - BODY TEMPERATURE INCREASED [None]
  - DIARRHOEA [None]
  - INFECTION [None]
